FAERS Safety Report 8994647 (Version 1)
Quarter: 2013Q1

REPORT INFORMATION
  Report Type: Spontaneous
  Country: US (occurrence: US)
  Receive Date: 20130102
  Receipt Date: 20130102
  Transmission Date: 20140127
  Serious: No
  Sender: FDA-Public Use
  Company Number: US-AMGEN-USASP2012079608

PATIENT
  Sex: Female

DRUGS (2)
  1. ENBREL [Suspect]
     Indication: RHEUMATOID ARTHRITIS
     Dosage: UNK UNK, QWK
     Dates: start: 20121106
  2. METHOTREXATE [Concomitant]
     Dosage: 2.5 MG, 10 WEEKLY TABLETS
     Dates: start: 2010

REACTIONS (4)
  - Respiratory tract congestion [Not Recovered/Not Resolved]
  - Night sweats [Not Recovered/Not Resolved]
  - Onychoclasis [Not Recovered/Not Resolved]
  - Skin fissures [Not Recovered/Not Resolved]
